FAERS Safety Report 17674414 (Version 1)
Quarter: 2020Q2

REPORT INFORMATION
  Report Type: Spontaneous
  Country: US (occurrence: US)
  Receive Date: 20200416
  Receipt Date: 20200416
  Transmission Date: 20200714
  Serious: No
  Sender: FDA-Public Use
  Company Number: US-GLAXOSMITHKLINE-US2020AMR062194

PATIENT
  Sex: Male

DRUGS (1)
  1. ZEJULA [Suspect]
     Active Substance: NIRAPARIB
     Indication: BONE NEOPLASM
     Dosage: 300 MG, QD
     Dates: start: 20200123

REACTIONS (2)
  - Disease progression [Unknown]
  - Lung disorder [Unknown]
